FAERS Safety Report 7255822-9 (Version None)
Quarter: 2011Q1

REPORT INFORMATION
  Report Type: 
  Country: None (occurrence: None)
  Receive Date: 20110129
  Receipt Date: 20100831
  Transmission Date: 20110831
  Serious: Yes (Other)
  Sender: FDA-Public Use
  Company Number: US-ABBOTT-10P-163-0668361-00

PATIENT
  Sex: Female
  Weight: 73.548 kg

DRUGS (3)
  1. HUMIRA [Suspect]
     Route: 058
     Dates: start: 20100701
  2. HUMIRA [Suspect]
     Indication: RHEUMATOID ARTHRITIS
     Route: 058
     Dates: start: 20090101, end: 20100201
  3. HUMIRA [Suspect]
     Route: 058
     Dates: start: 20100201, end: 20100601

REACTIONS (7)
  - CATARACT [None]
  - DIZZINESS [None]
  - BLOOD GLUCOSE INCREASED [None]
  - DRUG EFFECT DECREASED [None]
  - HEPATITIS C [None]
  - RHEUMATOID ARTHRITIS [None]
  - VISION BLURRED [None]
